FAERS Safety Report 25790636 (Version 1)
Quarter: 2025Q3

REPORT INFORMATION
  Report Type: Spontaneous
  Country: US (occurrence: US)
  Receive Date: 20250911
  Receipt Date: 20250911
  Transmission Date: 20251020
  Serious: Yes (Other)
  Sender: BAXTER
  Company Number: US-MLMSERVICE-20250828-PI628912-00175-1

PATIENT
  Age: 57 Year
  Sex: Female

DRUGS (1)
  1. HEPARIN SODIUM [Suspect]
     Active Substance: HEPARIN SODIUM
     Indication: Anticoagulant therapy
     Route: 042

REACTIONS (7)
  - Pericardial haemorrhage [Recovered/Resolved]
  - Lethargy [Recovered/Resolved]
  - Tachycardia [Recovered/Resolved]
  - Hypotension [Recovered/Resolved]
  - Ultrasound Doppler abnormal [Recovered/Resolved]
  - Sensory loss [Unknown]
  - Muscular weakness [Unknown]
